FAERS Safety Report 8510118-X (Version None)
Quarter: 2012Q3

REPORT INFORMATION
  Report Type: 
  Country: None (occurrence: None)
  Receive Date: 20120713
  Receipt Date: 20120705
  Transmission Date: 20120928
  Serious: Yes (Hospitalization, Other)
  Sender: FDA-Public Use
  Company Number: US-ASTRAZENECA-2011SE47042

PATIENT
  Age: 48 Year
  Sex: Male
  Weight: 108.9 kg

DRUGS (13)
  1. ROXYCODONE [Concomitant]
  2. ROBAXIN [Concomitant]
     Indication: MUSCLE RELAXANT THERAPY
  3. SEROQUEL [Suspect]
     Indication: BIPOLAR DISORDER
     Route: 048
  4. GLYBURIDE [Concomitant]
  5. METFORMIN HYDROCHLORIDE [Concomitant]
  6. NEXIUM [Suspect]
     Route: 048
  7. METFORMIN GLIMIPERIDE [Concomitant]
     Indication: DIABETES MELLITUS
  8. SIMVASTATIN [Concomitant]
  9. SEROQUEL [Suspect]
     Route: 048
  10. MEDICATION [Concomitant]
     Indication: NAUSEA
  11. SEROQUEL [Suspect]
     Dosage: 4 PILLS OF 300 MG AT NIGHT
     Route: 048
     Dates: start: 20050101
  12. MORPHINE [Concomitant]
     Indication: BACK DISORDER
  13. LISINOPRIL [Suspect]
     Indication: BLOOD PRESSURE
     Route: 048

REACTIONS (9)
  - MYOCARDIAL INFARCTION [None]
  - INSOMNIA [None]
  - OFF LABEL USE [None]
  - ACCIDENT AT WORK [None]
  - NAUSEA [None]
  - DRUG DOSE OMISSION [None]
  - DIABETES MELLITUS [None]
  - ADVERSE EVENT [None]
  - INTERVERTEBRAL DISC PROTRUSION [None]
